FAERS Safety Report 5282114-X (Version None)
Quarter: 2007Q1

REPORT INFORMATION
  Report Type: 
  Country: None (occurrence: None)
  Receive Date: 20070330
  Receipt Date: 20070320
  Transmission Date: 20070707
  Serious: Yes (Hospitalization, Other)
  Sender: FDA-Public Use
  Company Number: US-PFIZER INC-2006133480

PATIENT
  Sex: Female

DRUGS (2)
  1. BEXTRA [Suspect]
     Indication: ARTHRITIS
     Route: 048
     Dates: start: 20030522, end: 20030601
  2. VIOXX [Suspect]
     Route: 048
     Dates: start: 20030812, end: 20040324

REACTIONS (1)
  - ISCHAEMIC STROKE [None]
